FAERS Safety Report 4738040-5 (Version None)
Quarter: 2005Q3

REPORT INFORMATION
  Report Type: 
  Country: None (occurrence: None)
  Receive Date: 20050805
  Receipt Date: 20050805
  Transmission Date: 20060218
  Serious: Yes (Life-Threatening)
  Sender: FDA-Public Use
  Company Number: None

PATIENT
  Age: 26 Year
  Sex: Male
  Weight: 90.7194 kg

DRUGS (2)
  1. ABILIFY [Suspect]
     Indication: SCHIZOPHRENIA
     Dosage: 1 X DAILY ORAL
     Route: 048
     Dates: start: 20040601, end: 20050701
  2. ADVICOR [Concomitant]

REACTIONS (3)
  - ASTHENIA [None]
  - BLOOD TRIGLYCERIDES INCREASED [None]
  - DIZZINESS [None]
